FAERS Safety Report 7783111-2 (Version None)
Quarter: 2011Q3

REPORT INFORMATION
  Report Type: 
  Country: None (occurrence: None)
  Receive Date: 20110928
  Receipt Date: 20110920
  Transmission Date: 20111222
  Serious: Yes (Hospitalization, Other)
  Sender: FDA-Public Use
  Company Number: PHHY2011BR80680

PATIENT
  Age: 35 Year
  Sex: Male

DRUGS (13)
  1. DEPAKOTE [Concomitant]
     Dosage: 1500 MG, UNK
  2. TRILEPTAL [Suspect]
     Dosage: UNK UKN, UNK
  3. DEPAKOTE [Concomitant]
     Dosage: 500 MG, UNK
  4. DEPAKOTE [Concomitant]
     Dosage: 1000 MG, UNK
  5. TEGRETOL-XR [Suspect]
     Dosage: 400 MG, UNK
  6. CARBOLITIUM [Concomitant]
     Dosage: 1200 MG, DAILY
  7. ZYPREXA [Concomitant]
     Dosage: UNK UKN, UNK
  8. INVEGA [Concomitant]
     Dosage: UNK UKN, UNK
  9. DEPAKOTE [Concomitant]
     Dosage: UNK UKN, UNK
  10. PURAN [Concomitant]
     Dosage: UNK UKN, UNK
  11. CLONAZEPAM [Concomitant]
     Dosage: UNK UKN, UNK
  12. CITALOPRAM [Concomitant]
     Dosage: 2 DF, UNK
  13. CITALOPRAM [Concomitant]
     Dosage: 40 MG, UNK

REACTIONS (8)
  - EPISTAXIS [None]
  - ANAL HAEMORRHAGE [None]
  - HAEMATOCHEZIA [None]
  - NAUSEA [None]
  - DELIRIUM [None]
  - HALLUCINATION [None]
  - HYPOTENSION [None]
  - VOMITING [None]
